FAERS Safety Report 17945964 (Version 3)
Quarter: 2022Q4

REPORT INFORMATION
  Report Type: Spontaneous
  Country: DE (occurrence: DE)
  Receive Date: 20200626
  Receipt Date: 20221013
  Transmission Date: 20230113
  Serious: Yes (Hospitalization, Other)
  Sender: FDA-Public Use
  Company Number: DE-BRISTOL-MYERS SQUIBB COMPANY-BMS-2020-048720

PATIENT
  Age: 89 Year
  Sex: Female

DRUGS (10)
  1. APIXABAN [Suspect]
     Active Substance: APIXABAN
     Indication: Product used for unknown indication
     Dosage: 1-0-1-0
     Route: 048
  2. ASPIRIN [Suspect]
     Active Substance: ASPIRIN
     Indication: Product used for unknown indication
     Dosage: 100 MILLIGRAM, QD; 1-0-0-0
     Route: 048
  3. BISOPROLOL [Concomitant]
     Active Substance: BISOPROLOL
     Indication: Product used for unknown indication
     Dosage: 10 MG, 0.5-0-0-0
     Route: 048
  4. RISPERIDONE [Concomitant]
     Active Substance: RISPERIDONE
     Indication: Product used for unknown indication
     Dosage: 0.5 MILLIGRAM, QD; 1-0-0-0
     Route: 048
  5. CHOLECALCIFEROL [Concomitant]
     Active Substance: CHOLECALCIFEROL
     Indication: Product used for unknown indication
     Dosage: 2.000 IE, 1-0-0-0
     Route: 048
  6. LISINOPRIL [Concomitant]
     Active Substance: LISINOPRIL
     Indication: Product used for unknown indication
     Dosage: 20 MG, 0.5-0-0.5-0
     Route: 048
  7. OMEPRAZOLE [Concomitant]
     Active Substance: OMEPRAZOLE
     Indication: Product used for unknown indication
     Dosage: 20 MG, 1-0-0-0
     Route: 048
  8. EISEN(II) [Concomitant]
     Indication: Product used for unknown indication
     Dosage: 12.26 MG/ML, 5-0-0-0, SAFT
     Route: 048
  9. Pyridoxin/Fols?ure/Cyanocobalamin [Concomitant]
     Indication: Product used for unknown indication
     Dosage: 0.6|0.5 MG/MIKROGRAMM, QD; 1-0-0-0, TABLETTEN
     Route: 048
  10. NALOXONE HYDROCHLORIDE\TILIDINE HYDROCHLORIDE [Concomitant]
     Active Substance: NALOXONE HYDROCHLORIDE\TILIDINE HYDROCHLORIDE
     Indication: Product used for unknown indication
     Dosage: 4|50 MG, BID; 1-0-1-0
     Route: 048

REACTIONS (8)
  - Abdominal pain [Unknown]
  - Dyspepsia [Unknown]
  - Pallor [Unknown]
  - Flatulence [Unknown]
  - Decreased appetite [Unknown]
  - Weight decreased [Unknown]
  - Epigastric discomfort [Unknown]
  - Blood loss anaemia [Unknown]
